FAERS Safety Report 4638030-7 (Version None)
Quarter: 2005Q2

REPORT INFORMATION
  Report Type: 
  Country: None (occurrence: None)
  Receive Date: 20050415
  Receipt Date: 20050404
  Transmission Date: 20051028
  Serious: Yes (Hospitalization)
  Sender: FDA-Public Use
  Company Number: 2005054331

PATIENT
  Age: 76 Year
  Sex: Female
  Weight: 63.5036 kg

DRUGS (11)
  1. GLIPIZIDE [Suspect]
     Indication: DIABETES MELLITUS
     Dosage: 20 MG (10 MG, 2 IN 1 D), ORAL
     Route: 048
     Dates: end: 20050324
  2. ASPIRIN [Concomitant]
  3. HYDROCHLOROTHIAZIDE/OLMESARTAN (HYDROCHLOROTHIAZIDE, OLMESARTAN) [Concomitant]
  4. METFORMIN HCL [Concomitant]
  5. EZETIMIBE (EZETIMIBE) [Concomitant]
  6. DIGOXIN [Concomitant]
  7. PIOGLITAZONE HCL [Concomitant]
  8. ATORVASTATIN CALCIUM [Concomitant]
  9. NITROGLYCERIN [Concomitant]
  10. ALPRAZOLAM [Concomitant]
  11. FENOFIBRATE [Concomitant]

REACTIONS (3)
  - BLINDNESS TRANSIENT [None]
  - BLOOD GLUCOSE INCREASED [None]
  - HYPOGLYCAEMIA [None]
